FAERS Safety Report 6727643-4 (Version None)
Quarter: 2010Q2

REPORT INFORMATION
  Report Type: 
  Country: None (occurrence: None)
  Receive Date: 20100517
  Receipt Date: 20100512
  Transmission Date: 20101027
  Serious: Yes (Life-Threatening, Hospitalization)
  Sender: FDA-Public Use
  Company Number: PHHY2010BR30826

PATIENT
  Sex: Female

DRUGS (2)
  1. PARLODEL [Suspect]
     Indication: HYPERPROLACTINAEMIA
     Dosage: 2 TABLETS DAILY
     Route: 048
     Dates: start: 19890101
  2. FENERGAN [Suspect]
     Route: 042

REACTIONS (8)
  - FALL [None]
  - FEELING ABNORMAL [None]
  - GAIT DISTURBANCE [None]
  - HEART RATE INCREASED [None]
  - PAIN [None]
  - RIB FRACTURE [None]
  - TREMOR [None]
  - VEIN DISORDER [None]
